FAERS Safety Report 11780701 (Version 2)
Quarter: 2015Q4

REPORT INFORMATION
  Report Type: Report from Study
  Country: CH (occurrence: CH)
  Receive Date: 20151126
  Receipt Date: 20151209
  Transmission Date: 20160305
  Serious: Yes (Life-Threatening)
  Sender: FDA-Public Use
  Company Number: CH-ROCHE-GNE217632

PATIENT
  Age: 50 Year
  Sex: Male

DRUGS (3)
  1. ALTEPLASE [Suspect]
     Active Substance: ALTEPLASE
     Indication: ISCHAEMIC STROKE
     Route: 040
  2. ACE INHIBITOR (RO 31-2201) [Suspect]
     Active Substance: INVESTIGATIONAL PRODUCT
     Indication: PRODUCT USED FOR UNKNOWN INDICATION
     Route: 065
  3. ALTEPLASE [Suspect]
     Active Substance: ALTEPLASE
     Route: 041

REACTIONS (4)
  - Angioedema [Recovered/Resolved]
  - Dysphonia [Recovered/Resolved]
  - Asphyxia [Not Recovered/Not Resolved]
  - Mouth haemorrhage [Unknown]
